FAERS Safety Report 10186195 (Version 1)
Quarter: 2014Q2

REPORT INFORMATION
  Report Type: Spontaneous
  Country: US (occurrence: US)
  Receive Date: 20140521
  Receipt Date: 20140521
  Transmission Date: 20141212
  Serious: Yes (Other)
  Sender: FDA-Public Use
  Company Number: US-GLAXOSMITHKLINE-A1073968A

PATIENT
  Sex: Female

DRUGS (1)
  1. VERAMYST [Suspect]
     Indication: RESPIRATORY DISORDER
     Route: 065
     Dates: start: 20101222

REACTIONS (2)
  - Ovarian mass [Unknown]
  - Ovarian operation [Unknown]
